FAERS Safety Report 9237225 (Version 1)
Quarter: 2013Q2

REPORT INFORMATION
  Report Type: Other
  Country: GB (occurrence: GB)
  Receive Date: 20130417
  Receipt Date: 20130417
  Transmission Date: 20140414
  Serious: Yes (Other)
  Sender: FDA-Public Use
  Company Number: GB-WATSON-2013-06351

PATIENT
  Sex: Female

DRUGS (6)
  1. LANSOPRAZOLE (UNKNOWN) [Suspect]
     Indication: PRODUCT USED FOR UNKNOWN INDICATION
     Route: 065
  2. FOLIC ACID (WATSON LABORATORIES) [Suspect]
     Indication: PRODUCT USED FOR UNKNOWN INDICATION
     Dosage: 5 MG, UNKNOWN
     Route: 065
  3. QUINORIC [Suspect]
     Indication: GASTROINTESTINAL MOTILITY DISORDER
     Dosage: 1 DF, UNK
     Route: 065
  4. ETANERCEPT [Suspect]
     Indication: ARTHRITIS
     Dosage: UNK
     Route: 065
     Dates: start: 201111
  5. LYRICA [Suspect]
     Indication: PRODUCT USED FOR UNKNOWN INDICATION
     Dosage: 75 MG, BID
     Route: 065
  6. METHOTREXATE [Concomitant]
     Indication: PRODUCT USED FOR UNKNOWN INDICATION
     Dosage: 25 MG, 1/WEEK
     Route: 058

REACTIONS (5)
  - Inflammation [Recovering/Resolving]
  - Arthritis [Recovering/Resolving]
  - Asthenia [Recovering/Resolving]
  - Nervous system disorder [Recovering/Resolving]
  - Gastrointestinal motility disorder [Recovering/Resolving]
